FAERS Safety Report 24656065 (Version 1)
Quarter: 2024Q4

REPORT INFORMATION
  Report Type: Spontaneous
  Country: US (occurrence: US)
  Receive Date: 20241124
  Receipt Date: 20241124
  Transmission Date: 20250115
  Serious: No
  Sender: SANOFI AVENTIS
  Company Number: US-SA-2024SA339781

PATIENT
  Age: 33 Year
  Sex: Female

DRUGS (7)
  1. DUPIXENT [Suspect]
     Active Substance: DUPILUMAB
     Indication: Dermatitis atopic
     Dosage: 300 MG, QOW
     Route: 058
     Dates: start: 202407
  2. FOLLISTIM AQ [Concomitant]
     Active Substance: FOLLITROPIN
  3. GANIRELIX ACETATE [Concomitant]
     Active Substance: GANIRELIX ACETATE
  4. OVIDREL [Concomitant]
     Active Substance: CHORIOGONADOTROPIN ALFA
  5. SKYRIZI [Concomitant]
     Active Substance: RISANKIZUMAB-RZAA
  6. LEUPROLIDE ACETATE [Concomitant]
     Active Substance: LEUPROLIDE ACETATE
  7. MENOPUR [Concomitant]
     Active Substance: FOLLITROPIN\LUTEINIZING HORMONE

REACTIONS (2)
  - Rash [Recovered/Resolved]
  - Therapeutic product effect incomplete [Recovered/Resolved]

NARRATIVE: CASE EVENT DATE: 20240101
